FAERS Safety Report 4407053-5 (Version None)
Quarter: 2004Q3

REPORT INFORMATION
  Report Type: 
  Country: None (occurrence: None)
  Receive Date: 20040721
  Receipt Date: 20040714
  Transmission Date: 20050211
  Serious: Yes (Hospitalization)
  Sender: FDA-Public Use
  Company Number: 04-07-1004

PATIENT
  Age: 69 Year
  Sex: Female

DRUGS (3)
  1. ENALAPRIL MALEATE [Suspect]
     Indication: HYPERTENSION
     Dosage: 20 MG QD ORAL
     Route: 048
     Dates: start: 19890101, end: 20010701
  2. ESTROGENIC SUBSTANCE [Concomitant]
  3. LOVASTATIN [Concomitant]

REACTIONS (10)
  - ABDOMINAL PAIN [None]
  - ANGIONEUROTIC OEDEMA [None]
  - ANTIBODY TEST POSITIVE [None]
  - ANTINUCLEAR ANTIBODY POSITIVE [None]
  - COMPUTERISED TOMOGRAM ABNORMAL [None]
  - FACE OEDEMA [None]
  - GINGIVAL SWELLING [None]
  - NAUSEA [None]
  - SWELLING [None]
  - VOMITING [None]
